FAERS Safety Report 8757266 (Version 1)
Quarter: 2012Q4

REPORT INFORMATION
  Report Type: 
  Country: NL (occurrence: NL)
  Receive Date: 20120828
  Receipt Date: 20120828
  Transmission Date: 20130627
  Serious: Yes (Other)
  Sender: FDA-Public Use
  Company Number: NL-009507513-1208NLD006800

PATIENT

DRUGS (10)
  1. UNSPECIFIED INGREDIENT [Suspect]
     Dosage: 25 mg, UNK
     Dates: start: 20110104
  2. UNSPECIFIED INGREDIENT [Suspect]
     Dosage: 50 mg, UNK
  3. APROVEL [Concomitant]
     Dosage: 300 mg, qd
  4. TEMAZEPAM [Concomitant]
     Dosage: 10 mg, UNK
  5. BEZALIP [Concomitant]
     Dosage: 400 mg, UNK
  6. HYDROCHLOROTHIAZIDE [Concomitant]
     Dosage: 25 mg, UNK
  7. NIFEDIPINE [Concomitant]
     Dosage: 30 mg, UNK
  8. QUINAPRIL HYDROCHLORIDE [Concomitant]
     Dosage: 5 mg, UNK
  9. NOVORAPID PENFILL [Concomitant]
     Dosage: 1 DF, 100E/ML
  10. INSULATARD (INSULIN HUMAN, ISOPHANE) [Concomitant]
     Indication: NEURALGIA
     Dosage: 100IE/ML

REACTIONS (1)
  - Speech disorder [Recovered/Resolved with Sequelae]
